FAERS Safety Report 5675223-4 (Version None)
Quarter: 2008Q2

REPORT INFORMATION
  Report Type: 
  Country: None (occurrence: None)
  Receive Date: 20080307
  Receipt Date: 20070829
  Transmission Date: 20081010
  Serious: Yes (Other)
  Sender: FDA-Public Use
  Company Number: T200700956

PATIENT
  Age: 55 Year
  Sex: Male
  Weight: 79.4 kg

DRUGS (2)
  1. OPTIRAY 300 [Suspect]
     Indication: COMPUTERISED TOMOGRAM
     Dosage: 80 MI, SINGLE, INTRAVENOUS
     Route: 042
     Dates: start: 20070817, end: 20070817
  2. CLARITIN [Concomitant]

REACTIONS (4)
  - SNEEZING [None]
  - THROAT IRRITATION [None]
  - THROAT TIGHTNESS [None]
  - URTICARIA [None]
